FAERS Safety Report 4341393-3 (Version None)
Quarter: 2004Q2

REPORT INFORMATION
  Report Type: 
  Country: None (occurrence: None)
  Receive Date: 20040413
  Receipt Date: 20040405
  Transmission Date: 20050107
  Serious: Yes (Hospitalization)
  Sender: FDA-Public Use
  Company Number: FRWYE688405APR04

PATIENT
  Age: 72 Year
  Sex: Female

DRUGS (6)
  1. OXAZEPAM [Suspect]
     Indication: ANXIETY
     Dosage: 10 MG 1X PER 1 DAY ORAL
     Route: 048
  2. FENOFIBRATE [Suspect]
     Indication: HYPERLIPIDAEMIA
     Dosage: 200 MG 1X PER 1 DAY ORAL
     Route: 048
  3. STABLON (TIANEPTINE, TABLET, 0) [Suspect]
     Indication: DEPRESSION
     Dosage: 37.5 MG 1X PER 1 DAY ORAL
     Route: 048
  4. TRIATEC (RAMIPRIL, , O) [Suspect]
     Indication: HYPERTENSION
     Dosage: 5 MG 1X PER 1 DAY ORAL
     Route: 048
  5. LERCANIDIPINE [Concomitant]
  6. LASIX [Concomitant]

REACTIONS (1)
  - DRUG ERUPTION [None]
